FAERS Safety Report 9612092 (Version 1)
Quarter: 2013Q4

REPORT INFORMATION
  Report Type: Spontaneous
  Country: US (occurrence: US)
  Receive Date: 20131010
  Receipt Date: 20131010
  Transmission Date: 20140711
  Serious: Yes (Other)
  Sender: FDA-Public Use
  Company Number: US-ASTELLAS-2013US009822

PATIENT
  Age: 86 Year
  Sex: Male
  Weight: 99 kg

DRUGS (2)
  1. MYRBETRIQ [Suspect]
     Indication: PRODUCT USED FOR UNKNOWN INDICATION
     Dosage: 25 MG, UID/QD
     Route: 048
     Dates: start: 20130804, end: 20130807
  2. MYRBETRIQ [Suspect]
     Dosage: 25 MG, UID/QD
     Route: 048
     Dates: start: 20130912

REACTIONS (5)
  - Cystitis [Recovered/Resolved]
  - Dyspnoea [Unknown]
  - Nocturia [Unknown]
  - Abdominal discomfort [Unknown]
  - Pruritus [Unknown]
